FAERS Safety Report 5154028-7 (Version None)
Quarter: 2006Q4

REPORT INFORMATION
  Report Type: 
  Country: None (occurrence: None)
  Receive Date: 20061120
  Receipt Date: 20061115
  Transmission Date: 20070319
  Serious: Yes (Other)
  Sender: FDA-Public Use
  Company Number: PHHC2-015

PATIENT
  Age: 63 Year
  Sex: Male

DRUGS (3)
  1. HYCAMTIN [Suspect]
     Dosage: .65MGM2 PER DAY
     Route: 042
     Dates: start: 20060904, end: 20061020
  2. CISPLATIN [Suspect]
     Indication: SMALL CELL LUNG CANCER STAGE UNSPECIFIED
     Dosage: 60MGM2 PER DAY
     Route: 042
     Dates: start: 20060904, end: 20061016
  3. NEUPOGEN [Concomitant]
     Dosage: 75MCG PER DAY
     Route: 048
     Dates: start: 20060909, end: 20061102

REACTIONS (3)
  - COLONIC POLYP [None]
  - HAEMOGLOBIN DECREASED [None]
  - LARGE INTESTINE CARCINOMA [None]
